FAERS Safety Report 20868648 (Version 1)
Quarter: 2022Q2

REPORT INFORMATION
  Report Type: Spontaneous
  Country: PT (occurrence: None)
  Receive Date: 20220524
  Receipt Date: 20220524
  Transmission Date: 20220720
  Serious: Yes (Other)
  Sender: FDA-Public Use
  Company Number: PT-Merck Healthcare KGaA-9323482

PATIENT
  Age: 78 Year
  Sex: Female

DRUGS (1)
  1. AVELUMAB [Suspect]
     Active Substance: AVELUMAB
     Indication: Transitional cell carcinoma
     Dosage: 800 (UNSPECIFIED DOSE)
     Dates: start: 202204, end: 202205

REACTIONS (3)
  - Syncope [Unknown]
  - Hyperhidrosis [Unknown]
  - Alopecia [Unknown]
